FAERS Safety Report 5200952-6 (Version None)
Quarter: 2007Q1

REPORT INFORMATION
  Report Type: 
  Country: None (occurrence: None)
  Receive Date: 20070103
  Receipt Date: 20061221
  Transmission Date: 20070707
  Serious: Yes (Hospitalization)
  Sender: FDA-Public Use
  Company Number: 2006SP008795

PATIENT
  Age: 89 Year
  Sex: Female

DRUGS (5)
  1. CELESTONE [Suspect]
     Dosage: PO
     Route: 048
     Dates: start: 20061102, end: 20061127
  2. DIPROLENE [Suspect]
     Dosage: TOP
     Route: 061
     Dates: start: 20061102, end: 20061127
  3. LEVOTHYROXINE SODIUM [Suspect]
     Dosage: 12.5 MCG;QD;PO
     Route: 048
  4. PERINDOPRIL ERBUMINE [Suspect]
     Dosage: SEE IMAGE
     Route: 048
     Dates: start: 20061025
  5. LASIX [Suspect]
     Dosage: 1 DF;QD;PO
     Route: 048

REACTIONS (4)
  - ANTIBODY TEST POSITIVE [None]
  - CONDITION AGGRAVATED [None]
  - ERYTHEMA [None]
  - PEMPHIGOID [None]
